FAERS Safety Report 26085032 (Version 2)
Quarter: 2025Q4

REPORT INFORMATION
  Report Type: Report from Study
  Country: CA (occurrence: CA)
  Receive Date: 20251125
  Receipt Date: 20251204
  Transmission Date: 20260118
  Serious: Yes (Hospitalization)
  Sender: ALEXION PHARMACEUTICALS
  Company Number: CA-AstraZeneca-CH-00992894A

PATIENT
  Sex: Female

DRUGS (3)
  1. ULTOMIRIS [Suspect]
     Active Substance: RAVULIZUMAB-CWVZ
     Indication: Myasthenia gravis
     Dosage: 2700 MILLIGRAM, SINGLE
  2. ULTOMIRIS [Suspect]
     Active Substance: RAVULIZUMAB-CWVZ
     Dosage: 3300 MILLIGRAM, Q2W
     Dates: start: 20250718
  3. ULTOMIRIS [Suspect]
     Active Substance: RAVULIZUMAB-CWVZ
     Dosage: 3300 MILLIGRAM, Q8W
     Dates: start: 20250912

REACTIONS (5)
  - Feeling abnormal [Unknown]
  - Pain [Unknown]
  - Screaming [Unknown]
  - Malaise [Unknown]
  - Gait disturbance [Unknown]
